FAERS Safety Report 9220496 (Version 1)
Quarter: 2013Q2

REPORT INFORMATION
  Report Type: Spontaneous
  Country: US (occurrence: US)
  Receive Date: 20130409
  Receipt Date: 20130409
  Transmission Date: 20140414
  Serious: No
  Sender: FDA-Public Use
  Company Number: US-UPSHER-SMITH LABORATORIES, INC.-12003110

PATIENT
  Age: 52 Year
  Sex: Female

DRUGS (3)
  1. PREVALITE [Suspect]
     Indication: BLOOD CHOLESTEROL INCREASED
     Dosage: 4 G, BID
     Route: 048
     Dates: start: 201111, end: 201203
  2. PREVALITE [Suspect]
     Dosage: 8 G, QD
     Route: 048
     Dates: start: 201203
  3. NONE [Concomitant]

REACTIONS (2)
  - Flatulence [Not Recovered/Not Resolved]
  - Abdominal distension [Not Recovered/Not Resolved]
